FAERS Safety Report 10611800 (Version 18)
Quarter: 2016Q1

REPORT INFORMATION
  Report Type: Spontaneous
  Country: US (occurrence: US)
  Receive Date: 20141126
  Receipt Date: 20160301
  Transmission Date: 20160525
  Serious: Yes (Hospitalization, Other)
  Sender: FDA-Public Use
  Company Number: US-GLAXOSMITHKLINE-A1071427A

PATIENT
  Age: 2 Year
  Sex: Female

DRUGS (15)
  1. FLOLAN [Suspect]
     Active Substance: EPOPROSTENOL SODIUM
     Dosage: 69 NG/KG/MIN CONTINUOUSLY
     Route: 042
  2. REVATIO [Concomitant]
     Active Substance: SILDENAFIL CITRATE
  3. FLOLAN [Suspect]
     Active Substance: EPOPROSTENOL SODIUM
     Dosage: 67.5 NG/KG/MIN CONTINUOUSLY
     Route: 042
  4. FLOLAN [Suspect]
     Active Substance: EPOPROSTENOL SODIUM
     Dosage: 67.5 NG/KG/MIN CONTINUOUSLY
     Route: 042
  5. FLOLAN [Suspect]
     Active Substance: EPOPROSTENOL SODIUM
     Dosage: 78 NG/KG/MIN, CO
     Dates: start: 20140408
  6. FLOLAN [Suspect]
     Active Substance: EPOPROSTENOL SODIUM
     Dosage: UNK
     Dates: start: 20140219
  7. FLOLAN [Suspect]
     Active Substance: EPOPROSTENOL SODIUM
     Dosage: 72 NG/KG/MIN
     Route: 042
  8. FLOLAN [Suspect]
     Active Substance: EPOPROSTENOL SODIUM
     Dosage: UNK
     Dates: start: 20140219
  9. FLOLAN [Suspect]
     Active Substance: EPOPROSTENOL SODIUM
     Indication: COR PULMONALE CHRONIC
     Dosage: VIAL STR 0.5 MG, 2000 NG/ML, PUMP RATE 48 ML/DAY, FOR 6 NG/KG/MIN 10 NG/KG/MIN; CONC: 3000 NG/M[...]
     Route: 042
     Dates: start: 20140219
  10. FLOLAN [Suspect]
     Active Substance: EPOPROSTENOL SODIUM
     Dosage: 22 NG/KG/MIN
     Dates: start: 20140408
  11. FLOLAN [Suspect]
     Active Substance: EPOPROSTENOL SODIUM
     Dosage: 78 NG/KG/MIN CONTINUOUS; CONCENTRATION: 30,000 NG/M L; PUMP RATE: 50 ML/DAY; VIAL STRENGTH: 1.5 MG
     Dates: start: 20140408
  12. FLOLAN [Suspect]
     Active Substance: EPOPROSTENOL SODIUM
     Indication: ATRIAL SEPTAL DEFECT
     Dosage: UNK
     Dates: start: 20140219
  13. FLOLAN [Suspect]
     Active Substance: EPOPROSTENOL SODIUM
     Indication: PULMONARY HYPERTENSION
     Dosage: UNK
     Dates: start: 20140219
  14. FLOLAN [Suspect]
     Active Substance: EPOPROSTENOL SODIUM
     Dosage: UNK
  15. CHLORAPREP [Suspect]
     Active Substance: CHLORHEXIDINE GLUCONATE\ISOPROPYL ALCOHOL
     Indication: PRODUCT USED FOR UNKNOWN INDICATION

REACTIONS (27)
  - Complication associated with device [Unknown]
  - Respiratory distress [Unknown]
  - Dermatitis contact [Not Recovered/Not Resolved]
  - Headache [Recovered/Resolved]
  - Respiratory syncytial virus infection [Recovering/Resolving]
  - Gastrointestinal infection [Unknown]
  - Mucous membrane disorder [Unknown]
  - Infection [Unknown]
  - Oxygen saturation decreased [Recovering/Resolving]
  - Catheter site infection [Unknown]
  - Malaise [Unknown]
  - Decreased appetite [Not Recovered/Not Resolved]
  - Epistaxis [Unknown]
  - Tibia fracture [Unknown]
  - Device infusion issue [Recovered/Resolved]
  - Device damage [Unknown]
  - Catheter site erythema [Unknown]
  - Ear infection [Unknown]
  - Nasopharyngitis [Unknown]
  - Pyrexia [Unknown]
  - Nausea [Not Recovered/Not Resolved]
  - Dyspepsia [Unknown]
  - Adverse drug reaction [Unknown]
  - Hospitalisation [Unknown]
  - Catheterisation cardiac [Unknown]
  - Central venous catheterisation [Unknown]
  - Bronchitis [Unknown]

NARRATIVE: CASE EVENT DATE: 20140423
